FAERS Safety Report 4543129-X (Version None)
Quarter: 2004Q4

REPORT INFORMATION
  Report Type: 
  Country: None (occurrence: None)
  Receive Date: 20041230
  Receipt Date: 20041230
  Transmission Date: 20050328
  Serious: Yes (Life-Threatening, Hospitalization, Disabling, Congenital Anomaly)
  Sender: FDA-Public Use
  Company Number: None

PATIENT
  Sex: Male
  Weight: 1.9 kg

DRUGS (3)
  1. DIOVAN HCT [Suspect]
     Indication: HYPERTENSION
     Dosage: 80MG\12.5MG PO DAILY
     Route: 048
  2. LEXAPRO [Concomitant]
  3. XANAX [Concomitant]

REACTIONS (13)
  - APGAR SCORE LOW [None]
  - BONE DISORDER [None]
  - CONGENITAL ANOMALY [None]
  - CONGENITAL FOOT MALFORMATION [None]
  - DELAYED FONTANELLE CLOSURE [None]
  - DRUG EXPOSURE DURING PREGNANCY [None]
  - FACIAL DYSMORPHISM [None]
  - LIMB MALFORMATION [None]
  - NEONATAL RESPIRATORY DISTRESS SYNDROME [None]
  - PREMATURE BABY [None]
  - PULMONARY HYPOPLASIA [None]
  - RENAL FAILURE NEONATAL [None]
  - RESPIRATORY TRACT MALFORMATION [None]
